FAERS Safety Report 4766435-2 (Version None)
Quarter: 2005Q3

REPORT INFORMATION
  Report Type: 
  Country: None (occurrence: None)
  Receive Date: 20050912
  Receipt Date: 20050901
  Transmission Date: 20060218
  Serious: Yes (Hospitalization)
  Sender: FDA-Public Use
  Company Number: FR-ROCHE-416288

PATIENT
  Age: 49 Year
  Sex: Male

DRUGS (24)
  1. MYCOPHENOLATE MOFETIL [Suspect]
     Route: 065
     Dates: start: 20041201, end: 20041206
  2. MYCOPHENOLATE MOFETIL [Suspect]
     Route: 065
     Dates: start: 20041207, end: 20050111
  3. MYCOPHENOLATE MOFETIL [Suspect]
     Dosage: 1500 MG AM AND 1000 MG PM
     Route: 065
     Dates: start: 20050112, end: 20050227
  4. MYCOPHENOLATE MOFETIL [Suspect]
     Route: 065
     Dates: start: 20050228, end: 20050309
  5. MYCOPHENOLATE MOFETIL [Suspect]
     Route: 065
     Dates: start: 20050310, end: 20050629
  6. MYCOPHENOLATE MOFETIL [Suspect]
     Route: 065
     Dates: start: 20050630
  7. CYCLOSPORINE [Suspect]
     Route: 065
     Dates: start: 20041201, end: 20041202
  8. CYCLOSPORINE [Suspect]
     Dosage: ADJUSTED TO MEET PRE-DEFINED TARGET LEVELS.
     Route: 065
     Dates: start: 20041203
  9. METHYLPREDNISOLONE [Suspect]
     Route: 065
     Dates: start: 20041202, end: 20041202
  10. METHYLPREDNISOLONE [Suspect]
     Dosage: TAPERED ACCORDING TO LOCAL PROTOCOL.
     Route: 065
     Dates: start: 20041203, end: 20041215
  11. PREDNISOLONE [Suspect]
     Dosage: TAPERED ACCODING TO LOCAL PROTOCOL.
     Route: 065
     Dates: start: 20041216
  12. DARBEPOETIN ALFA [Concomitant]
     Indication: ANAEMIA
     Dates: end: 20041201
  13. AMOXICILLIN [Concomitant]
     Dates: start: 20041204
  14. SULFAMETHOXAZOLE [Concomitant]
     Dates: start: 20041204
  15. NICARDIPINE HCL [Concomitant]
     Dates: end: 20041201
  16. ISRADIPINE [Concomitant]
     Dates: start: 20041209, end: 20050428
  17. ATORVASTATIN CALCIUM [Concomitant]
  18. COTRIMOXAZOLE [Concomitant]
     Indication: PROPHYLAXIS
     Dates: start: 20041203
  19. RILMENIDINE [Concomitant]
     Dates: start: 20041217, end: 20050203
  20. ATENOLOL [Concomitant]
     Dates: start: 20041220
  21. CEFTRIAXZONE [Concomitant]
     Dates: start: 20041216, end: 20041217
  22. IMIPENEME [Concomitant]
     Dates: start: 20041218, end: 20050121
  23. COLISTIMETHATE SODIQUE [Concomitant]
     Dates: start: 20041222, end: 20041229
  24. GANCICLOVIR [Concomitant]
     Dosage: STOPPED FROM 25 JANUARY 2005 TO 9 MARCH 2005.
     Dates: start: 20050111, end: 20050317

REACTIONS (1)
  - RENAL ARTERY STENOSIS [None]
